FAERS Safety Report 7230020-3 (Version None)
Quarter: 2011Q1

REPORT INFORMATION
  Report Type: 
  Country: None (occurrence: None)
  Receive Date: 20110117
  Receipt Date: 20101221
  Transmission Date: 20110831
  Serious: No
  Sender: FDA-Public Use
  Company Number: US-BAYER-2010-009322

PATIENT
  Sex: Male
  Weight: 142 kg

DRUGS (1)
  1. EOVIST [Suspect]
     Indication: NUCLEAR MAGNETIC RESONANCE IMAGING
     Dosage: 10 ML, ONCE
     Dates: start: 20101112, end: 20101112

REACTIONS (2)
  - INSPIRATORY CAPACITY DECREASED [None]
  - RESPIRATION ABNORMAL [None]
